FAERS Safety Report 16705736 (Version 4)
Quarter: 2019Q3

REPORT INFORMATION
  Report Type: Report from Study
  Country: GB (occurrence: GB)
  Receive Date: 20190815
  Receipt Date: 20190829
  Transmission Date: 20191004
  Serious: Yes (Hospitalization, Disabling, Other)
  Sender: FDA-Public Use
  Company Number: GB-MYLANLABS-2014M1008257

PATIENT
  Age: 92 Year
  Sex: Male
  Weight: 98.97 kg

DRUGS (18)
  1. ASPIRIN. [Concomitant]
     Active Substance: ASPIRIN
     Indication: PRODUCT USED FOR UNKNOWN INDICATION
     Dosage: 75 MG, QD
     Route: 065
  2. ACETYLSALICYLIC ACID [Concomitant]
     Active Substance: ASPIRIN
     Indication: PRODUCT USED FOR UNKNOWN INDICATION
     Dosage: 75 MG, QD
     Route: 065
  3. LUCENTIS [Suspect]
     Active Substance: RANIBIZUMAB
     Indication: NEOVASCULAR AGE-RELATED MACULAR DEGENERATION
     Dosage: 2 SHOTS
     Route: 031
     Dates: start: 20180528
  4. LUCENTIS [Suspect]
     Active Substance: RANIBIZUMAB
     Dosage: UNK
     Route: 031
     Dates: start: 201805, end: 201805
  5. CARBAMAZEPINE. [Suspect]
     Active Substance: CARBAMAZEPINE
     Indication: PAIN
     Dosage: 400 MG, TID (1200 MG,QD)
     Route: 048
     Dates: end: 20140828
  6. AMITRIPTYLINE [Suspect]
     Active Substance: AMITRIPTYLINE
     Indication: PAIN
     Dosage: TAKEN AT NIGHT
     Route: 048
     Dates: end: 20140828
  7. SIMVASTATIN. [Concomitant]
     Active Substance: SIMVASTATIN
     Indication: PRODUCT USED FOR UNKNOWN INDICATION
     Dosage: TAKEN AT NIGHT.
     Route: 065
  8. CARBAMAZEPINE. [Suspect]
     Active Substance: CARBAMAZEPINE
     Dosage: 200 MG, BID
     Route: 048
  9. LUCENTIS [Suspect]
     Active Substance: RANIBIZUMAB
     Indication: CHOROIDAL NEOVASCULARISATION
     Dosage: 2 SHOTS
     Route: 031
     Dates: start: 20180501
  10. AVASTIN [Suspect]
     Active Substance: BEVACIZUMAB
     Indication: NEOVASCULAR AGE-RELATED MACULAR DEGENERATION
     Dosage: ONE SHOT
     Route: 065
     Dates: start: 201709
  11. AVASTIN [Suspect]
     Active Substance: BEVACIZUMAB
     Indication: DRY AGE-RELATED MACULAR DEGENERATION
     Dosage: 2 SHOTS
     Route: 031
     Dates: start: 201805
  12. LUCENTIS [Suspect]
     Active Substance: RANIBIZUMAB
     Indication: DRY AGE-RELATED MACULAR DEGENERATION
     Dosage: 2 SHOTS, (TOTAL OF 3 SHOTS OVER THE PAST 3 YEARS)
     Route: 031
     Dates: start: 201806
  13. EYLEA [Suspect]
     Active Substance: AFLIBERCEPT
     Indication: MACULAR DEGENERATION
     Dosage: UNK
     Route: 065
  14. OMEPRAZOLE. [Concomitant]
     Active Substance: OMEPRAZOLE
     Indication: PRODUCT USED FOR UNKNOWN INDICATION
     Dosage: 10 MG, QD
     Route: 065
  15. ALBUTEROL                          /00139501/ [Concomitant]
     Active Substance: ALBUTEROL
     Indication: ASTHMA
     Dosage: UNK
  16. LUCENTIS [Suspect]
     Active Substance: RANIBIZUMAB
     Indication: PRODUCT USED FOR UNKNOWN INDICATION
     Dosage: 2 SHOTS
     Route: 031
     Dates: start: 2017, end: 2017
  17. LUCENTIS [Suspect]
     Active Substance: RANIBIZUMAB
     Dosage: 2 SHOTS
     Route: 031
     Dates: start: 201709
  18. AVASTIN [Suspect]
     Active Substance: BEVACIZUMAB
     Dosage: ONE SHOT
     Route: 031
     Dates: start: 2017

REACTIONS (22)
  - Dry age-related macular degeneration [Unknown]
  - Muscular weakness [Unknown]
  - Atrial fibrillation [Not Recovered/Not Resolved]
  - Skin exfoliation [Unknown]
  - Agitation [Unknown]
  - Intentional product use issue [Unknown]
  - Condition aggravated [Unknown]
  - Pulmonary thrombosis [Unknown]
  - Dyspnoea [Recovered/Resolved]
  - Confusional state [Recovered/Resolved]
  - Fall [Unknown]
  - Scar [Not Recovered/Not Resolved]
  - Loss of consciousness [Unknown]
  - Abdominal pain upper [Unknown]
  - Slow speech [Unknown]
  - Off label use [Unknown]
  - Neovascular age-related macular degeneration [Unknown]
  - Blood cholesterol increased [Unknown]
  - Blindness [Not Recovered/Not Resolved]
  - Blindness unilateral [Unknown]
  - Psoriasis [Unknown]
  - Drug ineffective [Unknown]

NARRATIVE: CASE EVENT DATE: 2018
